FAERS Safety Report 6145554-2 (Version None)
Quarter: 2009Q2

REPORT INFORMATION
  Report Type: 
  Country: None (occurrence: None)
  Receive Date: 20090402
  Receipt Date: 20090324
  Transmission Date: 20091009
  Serious: Yes (Hospitalization)
  Sender: FDA-Public Use
  Company Number: CIP09000795

PATIENT
  Age: 85 Year
  Sex: Female

DRUGS (1)
  1. RISEDRONATE SODIUM [Suspect]
     Dosage: ORAL
     Route: 048

REACTIONS (2)
  - FEMUR FRACTURE [None]
  - STRESS FRACTURE [None]
